FAERS Safety Report 5147133-2 (Version None)
Quarter: 2006Q4

REPORT INFORMATION
  Report Type: 
  Country: None (occurrence: None)
  Receive Date: 20061103
  Receipt Date: 20061020
  Transmission Date: 20070319
  Serious: Yes (Other)
  Sender: FDA-Public Use
  Company Number: 2006104774

PATIENT
  Age: 72 Year
  Sex: Male

DRUGS (11)
  1. MACUGEN [Suspect]
     Indication: MACULAR DEGENERATION
     Dosage: (0.3 MG, FREQUENCY: ONE TIME), INTRAVITREOUS
     Dates: start: 20060825, end: 20060825
  2. VASOTEC [Concomitant]
  3. NORVASC [Concomitant]
  4. LOSEC (OMEPRAZOLE) [Concomitant]
  5. ASPIRIN [Concomitant]
  6. VITALUX (ASCORBIC ACID, BETACAROTENE, COPPER, RIBOFLAVIN, SELENIUM, TO [Concomitant]
  7. DOVOBET (BETAMETHASONE, CALCIPOTRIOL) [Concomitant]
  8. DIPROLEN (BETAMETHASONE DIPROPIONATE) [Concomitant]
  9. SAW PALMETTO (SAW PALMETTO) [Concomitant]
  10. FLOMAX [Concomitant]
  11. PROSCAR [Concomitant]

REACTIONS (6)
  - EYE PAIN [None]
  - EYELID OEDEMA [None]
  - UVEITIS [None]
  - VISUAL ACUITY REDUCED [None]
  - VITREOUS FLOATERS [None]
  - VITREOUS OPACITIES [None]
